FAERS Safety Report 8277843-X (Version None)
Quarter: 2012Q2

REPORT INFORMATION
  Report Type: 
  Country: None (occurrence: None)
  Receive Date: 20120412
  Receipt Date: 20120405
  Transmission Date: 20120825
  Serious: Yes (Other)
  Sender: FDA-Public Use
  Company Number: US-PFIZER INC-2012048530

PATIENT
  Age: 88 Year
  Sex: Female

DRUGS (1)
  1. LATANOPROST [Suspect]
     Dosage: UNK
     Route: 047

REACTIONS (4)
  - GLAUCOMA [None]
  - CATARACT [None]
  - LACRIMATION INCREASED [None]
  - VISION BLURRED [None]
